FAERS Safety Report 12540673 (Version 3)
Quarter: 2016Q3

REPORT INFORMATION
  Report Type: Spontaneous
  Country: US (occurrence: US)
  Receive Date: 20160708
  Receipt Date: 20160719
  Transmission Date: 20161109
  Serious: No
  Sender: FDA-Public Use
  Company Number: US-TEVA-657709USA

PATIENT
  Sex: Female

DRUGS (1)
  1. ZECUITY [Suspect]
     Active Substance: SUMATRIPTAN SUCCINATE
     Indication: MIGRAINE
     Dosage: 39 MILLIGRAM DAILY;
     Route: 062

REACTIONS (6)
  - Wrong technique in product usage process [Unknown]
  - Pruritus [Unknown]
  - Pain [Unknown]
  - Blister [Recovering/Resolving]
  - Device battery issue [Unknown]
  - Erythema [Unknown]
